FAERS Safety Report 5606846-6 (Version None)
Quarter: 2008Q1

REPORT INFORMATION
  Report Type: 
  Country: None (occurrence: None)
  Receive Date: 20080129
  Receipt Date: 20080125
  Transmission Date: 20080703
  Serious: Yes (Life-Threatening, Hospitalization, Disabling, Other)
  Sender: FDA-Public Use
  Company Number: JP-BOEHRINGER INGELHEIM GMBH, GERMANY-2007-BP-26693NB

PATIENT
  Sex: Female
  Weight: 42 kg

DRUGS (11)
  1. MEXITIL [Suspect]
     Indication: ARRHYTHMIA
     Route: 048
     Dates: start: 20071108, end: 20071214
  2. WARFARIN SODIUM [Suspect]
     Indication: CARDIAC FAILURE
     Route: 048
     Dates: start: 20071108, end: 20071213
  3. ASPIRIN [Suspect]
     Indication: CARDIAC FAILURE
     Route: 048
     Dates: start: 20070621
  4. DIART [Suspect]
     Indication: CARDIAC FAILURE
     Route: 048
     Dates: start: 20071108, end: 20071213
  5. CARVEDILOL [Suspect]
     Indication: CARDIAC FAILURE
     Route: 048
     Dates: start: 20070719, end: 20071213
  6. MICARDIS [Suspect]
     Indication: CARDIAC FAILURE
     Route: 048
     Dates: start: 20071108, end: 20071213
  7. LENDORMIN TABLETS [Suspect]
     Indication: INSOMNIA
     Route: 048
     Dates: start: 20071108, end: 20071213
  8. PLAVIX [Suspect]
     Indication: CARDIAC FAILURE
     Route: 048
     Dates: start: 20070719, end: 20070823
  9. ALDACTONE [Suspect]
     Indication: CARDIAC FAILURE
     Route: 048
     Dates: start: 20070705, end: 20071105
  10. BLOPRESS [Suspect]
     Indication: CARDIAC FAILURE
     Route: 048
     Dates: start: 20070621, end: 20071105
  11. PARIET [Suspect]
     Indication: GASTRITIS
     Route: 048
     Dates: start: 20070621, end: 20070823

REACTIONS (7)
  - DRUG HYPERSENSITIVITY [None]
  - DRUG RASH WITH EOSINOPHILIA AND SYSTEMIC SYMPTOMS [None]
  - HAEMODIALYSIS [None]
  - HEPATIC FUNCTION ABNORMAL [None]
  - RENAL FAILURE ACUTE [None]
  - SURGERY [None]
  - TOXIC SKIN ERUPTION [None]
